FAERS Safety Report 18500232 (Version 1)
Quarter: 2020Q4

REPORT INFORMATION
  Report Type: Spontaneous
  Country: US (occurrence: US)
  Receive Date: 20201113
  Receipt Date: 20201113
  Transmission Date: 20210114
  Serious: No
  Sender: FDA-Public Use
  Company Number: US-MICRO LABS LIMITED-ML2020-03368

PATIENT
  Age: 61 Year
  Sex: Female

DRUGS (11)
  1. FLUCONAZOLE. [Suspect]
     Active Substance: FLUCONAZOLE
     Indication: ORAL CANDIDIASIS
     Route: 048
     Dates: start: 20201002
  2. FLUCONAZOLE. [Suspect]
     Active Substance: FLUCONAZOLE
     Dosage: SHE WAS INSTRUCTED TO TAKE 2 DOSES
     Route: 048
     Dates: start: 20201003
  3. AMOXICILLIN. [Suspect]
     Active Substance: AMOXICILLIN
     Dates: start: 2020, end: 2020
  4. MEDROL DOSE PACK [Suspect]
     Active Substance: METHYLPREDNISOLONE
     Dates: start: 20200706, end: 20200711
  5. NIACIN. [Concomitant]
     Active Substance: NIACIN
     Indication: HYPERLIPIDAEMIA
     Dosage: TIMED RELEASE
  6. CLINDAMYCIN. [Suspect]
     Active Substance: CLINDAMYCIN
     Route: 048
     Dates: start: 202006
  7. CLINDAMYCIN. [Suspect]
     Active Substance: CLINDAMYCIN
     Route: 048
     Dates: start: 20200707, end: 20200713
  8. FLUCONAZOLE. [Suspect]
     Active Substance: FLUCONAZOLE
     Dosage: FINAL DOSE
     Route: 048
     Dates: start: 20201005, end: 20201005
  9. CLINDAMYCIN. [Suspect]
     Active Substance: CLINDAMYCIN
     Route: 048
     Dates: start: 20200731, end: 20200807
  10. IBUPROFEN. [Suspect]
     Active Substance: IBUPROFEN
     Dosage: FOLLOWING HER FIRST ENDODONTIC PROCEDURE
     Route: 048
  11. IBUPROFEN. [Suspect]
     Active Substance: IBUPROFEN
     Dosage: FOLLOWING HER SECOND ENDODONTIC PROCEDURE

REACTIONS (9)
  - Thirst [Not Recovered/Not Resolved]
  - Hyperhidrosis [Not Recovered/Not Resolved]
  - Gastrointestinal disorder [Not Recovered/Not Resolved]
  - Diarrhoea [Recovered/Resolved]
  - Weight decreased [Not Recovered/Not Resolved]
  - Nausea [Not Recovered/Not Resolved]
  - Drug ineffective [Unknown]
  - Dry mouth [Not Recovered/Not Resolved]
  - Oral candidiasis [Not Recovered/Not Resolved]

NARRATIVE: CASE EVENT DATE: 202008
